FAERS Safety Report 19427249 (Version 2)
Quarter: 2021Q2

REPORT INFORMATION
  Report Type: Report from Study
  Country: None (occurrence: DE)
  Receive Date: 20210616
  Receipt Date: 20210618
  Transmission Date: 20210717
  Serious: Yes (Death, Hospitalization, Other)
  Sender: FDA-Public Use
  Company Number: DE-ABBVIE-21K-062-3942132-00

PATIENT
  Age: 76 Year
  Sex: Male

DRUGS (32)
  1. DUODOPA [Suspect]
     Active Substance: CARBIDOPA\LEVODOPA
     Dosage: MD 6.5ML, CRD 3.2ML/H, ED 1.7ML
     Route: 050
     Dates: start: 20150520
  2. LEVODOPA/BENSERAZID RATIOPHARM [Concomitant]
     Indication: PRODUCT USED FOR UNKNOWN INDICATION
     Dosage: 100MG/25MG TABLETS AT 20:30, UNIT: PIECE
  3. MIRTAZAPIN 1 A PHARMA [Concomitant]
     Indication: PRODUCT USED FOR UNKNOWN INDICATION
     Dosage: UNIT: PIECE
  4. TAVOR EXPIDET 1.0 [Concomitant]
     Indication: RESTLESSNESS
     Dosage: UNIT: PIECE, FREQUENCY: 1 TABLETS
  5. CITALOPRAM [Concomitant]
     Active Substance: CITALOPRAM HYDROBROMIDE
     Indication: PRODUCT USED FOR UNKNOWN INDICATION
  6. FINASTERID [Concomitant]
     Active Substance: FINASTERIDE
     Indication: PRODUCT USED FOR UNKNOWN INDICATION
  7. MIRTAZAPIN [Concomitant]
     Active Substance: MIRTAZAPINE
     Indication: PRODUCT USED FOR UNKNOWN INDICATION
  8. NOVAMINSULFON 1 A PHARMA [Concomitant]
     Active Substance: METAMIZOLE SODIUM
     Indication: PRODUCT USED FOR UNKNOWN INDICATION
     Dosage: FORM: DROPS, FREQUENCY: IF REQUIRED UP TO 4X20XDROPS, UNIT: DROPS
  9. TORASEMID?1A PHARMA [Concomitant]
     Active Substance: TORSEMIDE
     Indication: PRODUCT USED FOR UNKNOWN INDICATION
     Dosage: UNIT: PIECE
  10. PANTOPRAZOL [Concomitant]
     Active Substance: PANTOPRAZOLE SODIUM
     Indication: PRODUCT USED FOR UNKNOWN INDICATION
  11. BECLOMETASONE [Concomitant]
     Active Substance: BECLOMETHASONE DIPROPIONATE
     Indication: PRODUCT USED FOR UNKNOWN INDICATION
  12. QUETIAPIN [Concomitant]
     Active Substance: QUETIAPINE
     Indication: PRODUCT USED FOR UNKNOWN INDICATION
  13. LACTULOSE. [Concomitant]
     Active Substance: LACTULOSE
     Indication: PRODUCT USED FOR UNKNOWN INDICATION
  14. TAMSULOSIN 1A PHARMA [Concomitant]
     Active Substance: TAMSULOSIN
     Indication: PRODUCT USED FOR UNKNOWN INDICATION
     Dosage: UNIT: PIECE
  15. LEVODOPA BENSERAZIDE [Concomitant]
     Active Substance: BENSERAZIDE\LEVODOPA
     Indication: PRODUCT USED FOR UNKNOWN INDICATION
  16. FINASTERID 1 A PHARMA [Concomitant]
     Indication: PRODUCT USED FOR UNKNOWN INDICATION
     Dosage: UNIT: PIECE
  17. QUETIAPIN 1A PHARMA [Concomitant]
     Active Substance: QUETIAPINE
     Indication: PRODUCT USED FOR UNKNOWN INDICATION
     Dosage: UNIT: PIECE
  18. LACTULOSE 1A PHARMA [Concomitant]
     Indication: PRODUCT USED FOR UNKNOWN INDICATION
     Dosage: FORM:SYRUP, FREQUENCY: 1X20ML
  19. LORAZEPAM. [Concomitant]
     Active Substance: LORAZEPAM
     Indication: PRODUCT USED FOR UNKNOWN INDICATION
  20. PRAMIPEXOL [Concomitant]
     Active Substance: PRAMIPEXOLE
     Indication: PRODUCT USED FOR UNKNOWN INDICATION
  21. DUODOPA [Suspect]
     Active Substance: CARBIDOPA\LEVODOPA
     Indication: PARKINSON^S DISEASE
     Dosage: 20 MG/ML 5 MG/ML GEL
     Route: 050
     Dates: start: 201405
  22. CITALOPRAM [Concomitant]
     Active Substance: CITALOPRAM HYDROBROMIDE
     Indication: PRODUCT USED FOR UNKNOWN INDICATION
     Dosage: UNIT: PIECE
  23. LOPEDIUM ACUTE [Concomitant]
     Indication: DIARRHOEA
     Dosage: UNIT: PIECE, FREQUENCY: 1 CAPSULE IF NEEDED FOR DIARRHEA
  24. PRAMIPEXOL ABZ [Concomitant]
     Active Substance: PRAMIPEXOLE DIHYDROCHLORIDE
     Indication: PRODUCT USED FOR UNKNOWN INDICATION
     Dosage: UNIT: PIECE
  25. TAMSULOSIN [Concomitant]
     Active Substance: TAMSULOSIN
     Indication: PRODUCT USED FOR UNKNOWN INDICATION
  26. FORMOTEROL [Concomitant]
     Active Substance: FORMOTEROL
     Indication: PRODUCT USED FOR UNKNOWN INDICATION
  27. PANTOPRAZOLE SODIUM. [Concomitant]
     Active Substance: PANTOPRAZOLE SODIUM
     Indication: PRODUCT USED FOR UNKNOWN INDICATION
     Dosage: UNIT: PIECE
  28. VITAMIN B12 [Concomitant]
     Active Substance: CYANOCOBALAMIN
     Indication: PRODUCT USED FOR UNKNOWN INDICATION
     Dosage: UNIT: PIECE
  29. FOSTER [Concomitant]
     Active Substance: BECLOMETHASONE\FORMOTEROL
     Indication: PRODUCT USED FOR UNKNOWN INDICATION
     Dosage: 100/6MCG HUEBE PUFF , FORM: SPRAY, UNIT: PIECE
  30. METAMIZOL [Concomitant]
     Active Substance: METAMIZOLE SODIUM
     Indication: PRODUCT USED FOR UNKNOWN INDICATION
  31. TORASEMID [Concomitant]
     Active Substance: TORSEMIDE
     Indication: PRODUCT USED FOR UNKNOWN INDICATION
  32. LOPERAMID [Concomitant]
     Active Substance: LOPERAMIDE
     Indication: PRODUCT USED FOR UNKNOWN INDICATION

REACTIONS (30)
  - Medical device site inflammation [Unknown]
  - Balance disorder [Unknown]
  - Osteoarthritis [Unknown]
  - General physical health deterioration [Unknown]
  - Pulmonary congestion [Unknown]
  - Dystonia [Unknown]
  - Bradypnoea [Unknown]
  - Pericardial disease [Unknown]
  - Takayasu^s arteritis [Unknown]
  - Hypoventilation [Unknown]
  - Communication disorder [Unknown]
  - Aortic dilatation [Unknown]
  - Psychomotor hyperactivity [Unknown]
  - Heart sounds abnormal [Unknown]
  - Unevaluable event [Unknown]
  - Pneumonia aspiration [Fatal]
  - Cheyne-Stokes respiration [Unknown]
  - Coma [Unknown]
  - Pleural effusion [Unknown]
  - Pneumonia aspiration [Recovered/Resolved]
  - Device occlusion [Unknown]
  - Somnolence [Unknown]
  - Lung hyperinflation [Unknown]
  - Stoma site infection [Unknown]
  - Bradykinesia [Unknown]
  - Goitre [Unknown]
  - Hypotension [Unknown]
  - Mediastinal disorder [Unknown]
  - On and off phenomenon [Unknown]
  - Cardiomegaly [Unknown]

NARRATIVE: CASE EVENT DATE: 201412
